FAERS Safety Report 15125813 (Version 2)
Quarter: 2018Q3

REPORT INFORMATION
  Report Type: Spontaneous
  Country: DE (occurrence: DE)
  Receive Date: 20180710
  Receipt Date: 20180813
  Transmission Date: 20181010
  Serious: Yes (Death, Disabling, Congenital Anomaly, Other)
  Sender: FDA-Public Use
  Company Number: DE-LEO PHARMA-309753

PATIENT

DRUGS (15)
  1. HYDROXYCHLOROQUINE [Suspect]
     Active Substance: HYDROXYCHLOROQUINE
     Indication: FOETAL EXPOSURE DURING PREGNANCY
     Route: 064
  2. PREDNISOLONE. [Suspect]
     Active Substance: PREDNISOLONE
     Indication: FOETAL EXPOSURE DURING PREGNANCY
     Route: 064
  3. PROTOPIC [Suspect]
     Active Substance: TACROLIMUS
     Indication: FOETAL EXPOSURE DURING PREGNANCY
     Route: 064
  4. RIVAROXABAN [Suspect]
     Active Substance: RIVAROXABAN
     Indication: FOETAL EXPOSURE DURING PREGNANCY
     Route: 064
  5. SIMVASTATIN. [Suspect]
     Active Substance: SIMVASTATIN
     Indication: FOETAL EXPOSURE DURING PREGNANCY
     Route: 064
  6. ALISKIREN [Suspect]
     Active Substance: ALISKIREN
     Indication: FOETAL EXPOSURE DURING PREGNANCY
     Route: 064
  7. INNOHEP [Suspect]
     Active Substance: TINZAPARIN SODIUM
     Indication: FOETAL EXPOSURE DURING PREGNANCY
     Dosage: UNK
     Route: 064
  8. TORASEMIDE [Suspect]
     Active Substance: TORSEMIDE
     Indication: FOETAL EXPOSURE DURING PREGNANCY
     Route: 064
  9. SALBUTAMOL [Suspect]
     Active Substance: ALBUTEROL
     Indication: FOETAL EXPOSURE DURING PREGNANCY
     Route: 064
  10. EZETIMIBE. [Suspect]
     Active Substance: EZETIMIBE
     Indication: FOETAL EXPOSURE DURING PREGNANCY
     Route: 064
  11. METAMIZOLE [Suspect]
     Active Substance: METAMIZOLE
     Indication: FOETAL EXPOSURE DURING PREGNANCY
     Route: 064
  12. NICOTINE. [Suspect]
     Active Substance: NICOTINE
     Indication: FOETAL EXPOSURE DURING PREGNANCY
     Route: 064
  13. PANTOPRAZOLE [Suspect]
     Active Substance: PANTOPRAZOLE
     Indication: FOETAL EXPOSURE DURING PREGNANCY
     Route: 064
  14. RAMIPRIL. [Suspect]
     Active Substance: RAMIPRIL
     Indication: FOETAL EXPOSURE DURING PREGNANCY
     Route: 064
  15. ASPIRIN. [Suspect]
     Active Substance: ASPIRIN
     Indication: FOETAL EXPOSURE DURING PREGNANCY
     Route: 064

REACTIONS (6)
  - Congenital cardiovascular anomaly [Fatal]
  - Ventricular septal defect [Fatal]
  - Cardiac septal defect [Fatal]
  - Heart disease congenital [Fatal]
  - Truncus arteriosus persistent [Fatal]
  - Foetal exposure during pregnancy [Fatal]
